FAERS Safety Report 13770695 (Version 2)
Quarter: 2017Q3

REPORT INFORMATION
  Report Type: Spontaneous
  Country: US (occurrence: US)
  Receive Date: 20170719
  Receipt Date: 20170727
  Transmission Date: 20171127
  Serious: No
  Sender: FDA-Public Use
  Company Number: US-BAYER-2017-135752

PATIENT
  Sex: Female

DRUGS (1)
  1. MIRENA [Suspect]
     Active Substance: LEVONORGESTREL
     Indication: MENORRHAGIA
     Dosage: 20 MCG/24HR, CONT
     Route: 015
     Dates: start: 201610, end: 20170711

REACTIONS (4)
  - Abdominal pain lower [None]
  - Pre-existing condition improved [None]
  - Dyspareunia [None]
  - Vaginal haemorrhage [None]

NARRATIVE: CASE EVENT DATE: 2016
